FAERS Safety Report 9190060 (Version 1)
Quarter: 2013Q1

REPORT INFORMATION
  Report Type: Spontaneous
  Country: US (occurrence: None)
  Receive Date: 20130325
  Receipt Date: 20130325
  Transmission Date: 20140127
  Serious: Yes (Life-Threatening, Hospitalization, Other)
  Sender: FDA-Public Use
  Company Number: None

PATIENT
  Age: 62 Year
  Sex: Female
  Weight: 93.9 kg

DRUGS (1)
  1. GAMMAGARD [Suspect]
     Indication: DERMATOMYOSITIS
     Dosage: 5 X WK, EVERY 4 WK
     Route: 041
     Dates: start: 20130304, end: 20130308

REACTIONS (6)
  - Pulmonary embolism [None]
  - Anaemia [None]
  - Headache [None]
  - Meningitis aseptic [None]
  - Arthralgia [None]
  - Pain [None]
